FAERS Safety Report 5000233-X (Version None)
Quarter: 2006Q2

REPORT INFORMATION
  Report Type: 
  Country: None (occurrence: None)
  Receive Date: 20060511
  Receipt Date: 20060501
  Transmission Date: 20061013
  Serious: Yes (Other)
  Sender: FDA-Public Use
  Company Number: JP-MERCK-0605USA00400

PATIENT
  Age: 58 Year
  Sex: Male

DRUGS (2)
  1. SINGULAIR [Suspect]
     Route: 048
     Dates: start: 20051001
  2. PULMICORT [Concomitant]
     Route: 055

REACTIONS (2)
  - MALAISE [None]
  - SUDDEN HEARING LOSS [None]
